FAERS Safety Report 7025260-2 (Version None)
Quarter: 2010Q4

REPORT INFORMATION
  Report Type: 
  Country: None (occurrence: None)
  Receive Date: 20101001
  Receipt Date: 20100922
  Transmission Date: 20110411
  Serious: Yes (Other)
  Sender: FDA-Public Use
  Company Number: US-MPIJNJ-2010-04955

PATIENT
  Sex: Female
  Weight: 54.6 kg

DRUGS (27)
  1. VELCADE [Suspect]
     Indication: PROPHYLAXIS
     Dosage: 2.6 MG, CYCLIC
     Route: 042
     Dates: start: 20100916, end: 20100918
  2. TACROLIMUS [Suspect]
     Indication: PROPHYLAXIS
  3. SIROLIMUS [Suspect]
     Indication: PROPHYLAXIS
  4. ACYCLOVIR [Concomitant]
     Indication: PRODUCT USED FOR UNKNOWN INDICATION
     Dosage: 800 MG, UNK
  5. PERIDEX                            /00133002/ [Concomitant]
     Indication: PRODUCT USED FOR UNKNOWN INDICATION
     Dosage: 0.12 %, UNK
  6. ORTHO-CEPT [Concomitant]
     Indication: PRODUCT USED FOR UNKNOWN INDICATION
     Dosage: UNK
  7. LEXAPRO [Concomitant]
     Indication: PRODUCT USED FOR UNKNOWN INDICATION
     Dosage: 10 MG, UNK
  8. DIFLUCAN [Concomitant]
     Indication: PRODUCT USED FOR UNKNOWN INDICATION
     Dosage: 400 MG, UNK
  9. PANTOPRAZOLE [Concomitant]
     Indication: PRODUCT USED FOR UNKNOWN INDICATION
  10. COMPAZINE [Concomitant]
     Indication: PRODUCT USED FOR UNKNOWN INDICATION
  11. DIPHENHYDRAMINE [Concomitant]
     Indication: PRODUCT USED FOR UNKNOWN INDICATION
  12. HYDROCORTISONE [Concomitant]
     Indication: PRODUCT USED FOR UNKNOWN INDICATION
  13. NYSTATIN [Concomitant]
     Indication: PRODUCT USED FOR UNKNOWN INDICATION
  14. TETRACYCLINE [Concomitant]
     Indication: PRODUCT USED FOR UNKNOWN INDICATION
  15. ATIVAN [Concomitant]
     Indication: PRODUCT USED FOR UNKNOWN INDICATION
  16. MORPHINE [Concomitant]
     Indication: PRODUCT USED FOR UNKNOWN INDICATION
  17. OXYCODONE [Concomitant]
     Indication: PRODUCT USED FOR UNKNOWN INDICATION
  18. AMBIEN [Concomitant]
     Indication: PRODUCT USED FOR UNKNOWN INDICATION
  19. DEXTROSE WATER [Concomitant]
     Indication: PRODUCT USED FOR UNKNOWN INDICATION
  20. SODIUM CHLORIDE [Concomitant]
     Indication: PRODUCT USED FOR UNKNOWN INDICATION
  21. POTASSIUM CHLORIDE [Concomitant]
     Indication: PRODUCT USED FOR UNKNOWN INDICATION
  22. SCOPOLAMINE                        /00008701/ [Concomitant]
     Indication: PRODUCT USED FOR UNKNOWN INDICATION
     Route: 062
  23. HEPARIN LOCK FLUSH [Concomitant]
     Indication: PRODUCT USED FOR UNKNOWN INDICATION
  24. FLUCONAZOLE [Concomitant]
     Indication: PRODUCT USED FOR UNKNOWN INDICATION
     Dosage: 400 MG, UNK
  25. DILAUDID [Concomitant]
     Indication: PRODUCT USED FOR UNKNOWN INDICATION
  26. AZTREONAM [Concomitant]
     Indication: PRODUCT USED FOR UNKNOWN INDICATION
  27. CIPRO [Concomitant]
     Indication: PRODUCT USED FOR UNKNOWN INDICATION
     Dosage: 500 MG, UNK

REACTIONS (1)
  - CARDIOMYOPATHY [None]
